FAERS Safety Report 18978642 (Version 2)
Quarter: 2021Q1

REPORT INFORMATION
  Report Type: Spontaneous
  Country: US (occurrence: US)
  Receive Date: 20210308
  Receipt Date: 20210316
  Transmission Date: 20210420
  Serious: Yes (Hospitalization)
  Sender: FDA-Public Use
  Company Number: US-ROCHE-2783863

PATIENT
  Age: 67 Year
  Sex: Female

DRUGS (3)
  1. CRANBERRY. [Concomitant]
     Active Substance: CRANBERRY
  2. OMEPRAZOLE. [Concomitant]
     Active Substance: OMEPRAZOLE
  3. ESBRIET [Suspect]
     Active Substance: PIRFENIDONE
     Indication: IDIOPATHIC PULMONARY FIBROSIS
     Dosage: SUGGESTED AS FOLLOWED DAY 1?7: TAKE 1 CAPSULE ORAL THRICE A DAY, DAY 8?14: TAKE 2 CAPSULES THRICE A
     Route: 048
     Dates: start: 20210202, end: 20210303

REACTIONS (1)
  - Urinary tract infection [Unknown]

NARRATIVE: CASE EVENT DATE: 20210302
